FAERS Safety Report 6615303-X (Version None)
Quarter: 2010Q1

REPORT INFORMATION
  Report Type: 
  Country: None (occurrence: None)
  Receive Date: 20100305
  Receipt Date: 20091204
  Transmission Date: 20100710
  Serious: No
  Sender: FDA-Public Use
  Company Number: A0752808A

PATIENT
  Sex: Female

DRUGS (5)
  1. REQUIP [Suspect]
     Indication: PARKINSON'S DISEASE
     Route: 048
     Dates: start: 19990818, end: 20090105
  2. ROPINIROLE HYDROCHLORIDE [Suspect]
     Indication: PARKINSON'S DISEASE
     Route: 048
  3. MIRAPEX [Suspect]
     Indication: PARKINSON'S DISEASE
     Route: 065
  4. STALEVO 100 [Suspect]
     Indication: PARKINSON'S DISEASE
     Route: 065
  5. UNKNOWN [Concomitant]

REACTIONS (1)
  - PATHOLOGICAL GAMBLING [None]
